FAERS Safety Report 7302648-3 (Version None)
Quarter: 2011Q1

REPORT INFORMATION
  Report Type: 
  Country: None (occurrence: None)
  Receive Date: 20110218
  Receipt Date: 20110211
  Transmission Date: 20110831
  Serious: Yes (Other)
  Sender: FDA-Public Use
  Company Number: BR-PFIZER INC-2010098634

PATIENT
  Age: 24 Year
  Sex: Female
  Weight: 58 kg

DRUGS (1)
  1. DEPO-PROVERA [Suspect]
     Indication: CONTRACEPTION
     Dosage: 150 MG, EVERY 3 MONTHS
     Route: 030
     Dates: start: 20100728

REACTIONS (15)
  - DIPLOPIA [None]
  - DIZZINESS [None]
  - BONE PAIN [None]
  - MYALGIA [None]
  - VISION BLURRED [None]
  - SINUSITIS [None]
  - HEADACHE [None]
  - SWELLING FACE [None]
  - YELLOW SKIN [None]
  - EYE PAIN [None]
  - PAIN IN EXTREMITY [None]
  - EYE DISORDER [None]
  - NAUSEA [None]
  - CONDITION AGGRAVATED [None]
  - ABDOMINAL DISCOMFORT [None]
